FAERS Safety Report 4694524-X (Version None)
Quarter: 2005Q2

REPORT INFORMATION
  Report Type: 
  Country: None (occurrence: None)
  Receive Date: 20050620
  Receipt Date: 20041012
  Transmission Date: 20051028
  Serious: Yes (Life-Threatening, Hospitalization)
  Sender: FDA-Public Use
  Company Number: DE-MERCK-0410DEU00377

PATIENT
  Age: 79 Year
  Sex: Female

DRUGS (7)
  1. FOSAMAX [Suspect]
     Indication: OSTEOPOROSIS POSTMENOPAUSAL
     Route: 048
     Dates: start: 20040101, end: 20041001
  2. ISOSORBIDE DINITRATE [Concomitant]
     Route: 065
  3. METILDIGOXIN [Concomitant]
     Route: 065
  4. METOPROLOL SUCCINATE [Concomitant]
     Route: 048
  5. ATORVASTATIN CALCIUM [Concomitant]
     Route: 048
  6. HYDROCHLOROTHIAZIDE [Concomitant]
     Route: 048
  7. METFORMIN [Concomitant]
     Route: 048

REACTIONS (6)
  - ANAEMIA [None]
  - COLONIC POLYP [None]
  - GASTRITIS [None]
  - HIATUS HERNIA [None]
  - ILEAL ULCER [None]
  - SMALL INTESTINAL HAEMORRHAGE [None]
